FAERS Safety Report 8721479 (Version 12)
Quarter: 2016Q3

REPORT INFORMATION
  Report Type: Report from Study
  Country: BR (occurrence: BR)
  Receive Date: 20120813
  Receipt Date: 20160722
  Transmission Date: 20161109
  Serious: Yes (Hospitalization, Other)
  Sender: FDA-Public Use
  Company Number: BR-ROCHE-1100206

PATIENT
  Age: 57 Year
  Sex: Female
  Weight: 69 kg

DRUGS (16)
  1. CORTISONE [Suspect]
     Active Substance: CORTISONE\HYDROCORTISONE
     Indication: PRODUCT USED FOR UNKNOWN INDICATION
     Dosage: 1 AMPOULE PER WEEK
     Route: 065
  2. LOSARTAN. [Concomitant]
     Active Substance: LOSARTAN
     Route: 065
  3. ACETYLSALICYLIC ACID [Concomitant]
     Active Substance: ASPIRIN
     Dosage: AAS INFANT
     Route: 065
  4. MABTHERA [Suspect]
     Active Substance: RITUXIMAB
     Dosage: LATEST INFUSION WAS ON 07/AUG/2012.
     Route: 042
     Dates: start: 20110512
  5. PREDNISONE. [Concomitant]
     Active Substance: PREDNISONE
     Route: 065
  6. GABAPENTIN. [Concomitant]
     Active Substance: GABAPENTIN
     Route: 065
  7. METFORMIN [Concomitant]
     Active Substance: METFORMIN HYDROCHLORIDE
  8. MABTHERA [Suspect]
     Active Substance: RITUXIMAB
     Dosage: LATEST INFUSION ON 16/JUN/2016
     Route: 042
     Dates: start: 20160519
  9. ROSUVASTATIN. [Concomitant]
     Active Substance: ROSUVASTATIN
     Route: 065
  10. AMLODIPIN [Concomitant]
     Active Substance: AMLODIPINE BESYLATE
  11. CLOPIDOGREL [Concomitant]
     Active Substance: CLOPIDOGREL BISULFATE
     Route: 065
  12. HYDROCHLOROTHIAZIDE. [Concomitant]
     Active Substance: HYDROCHLOROTHIAZIDE
     Route: 065
  13. PARACETAMOL [Concomitant]
     Active Substance: ACETAMINOPHEN
  14. MABTHERA [Suspect]
     Active Substance: RITUXIMAB
     Indication: RHEUMATOID ARTHRITIS
     Dosage: MOST RECENT INFUSION ON 04/JUN/2014
     Route: 042
     Dates: start: 20110812
  15. ATENOLOL. [Concomitant]
     Active Substance: ATENOLOL
     Route: 065
  16. OMEPRAZOLE. [Concomitant]
     Active Substance: OMEPRAZOLE
     Route: 065

REACTIONS (20)
  - Neuropathy peripheral [Unknown]
  - Blood test abnormal [Not Recovered/Not Resolved]
  - Nausea [Unknown]
  - Bone pain [Unknown]
  - Plasma cell myeloma [Not Recovered/Not Resolved]
  - Arthralgia [Not Recovered/Not Resolved]
  - Localised infection [Unknown]
  - Cardiac disorder [Unknown]
  - Extremity necrosis [Unknown]
  - Haematological malignancy [Not Recovered/Not Resolved]
  - Myocardial infarction [Unknown]
  - Influenza [Recovering/Resolving]
  - Rheumatoid arthritis [Unknown]
  - Nausea [Unknown]
  - Wound infection [Recovered/Resolved]
  - Diabetes mellitus [Not Recovered/Not Resolved]
  - Vomiting [Unknown]
  - Pyrexia [Unknown]
  - Limb injury [Recovered/Resolved]
  - Plasma cell myeloma [Unknown]

NARRATIVE: CASE EVENT DATE: 201311
